FAERS Safety Report 14003331 (Version 11)
Quarter: 2020Q1

REPORT INFORMATION
  Report Type: Spontaneous
  Country: US (occurrence: US)
  Receive Date: 20170922
  Receipt Date: 20200117
  Transmission Date: 20200409
  Serious: Yes (Hospitalization, Other)
  Sender: FDA-Public Use
  Company Number: US-ACTELION-A-NJ2017-159714

PATIENT
  Age: 61 Year
  Sex: Female
  Weight: 72.11 kg

DRUGS (3)
  1. REMODULIN [Concomitant]
     Active Substance: TREPROSTINIL
  2. OPSUMIT [Suspect]
     Active Substance: MACITENTAN
     Indication: PULMONARY ARTERIAL HYPERTENSION
     Dosage: 10 MG, QD
     Route: 048
     Dates: start: 20160715
  3. REVATIO [Concomitant]
     Active Substance: SILDENAFIL CITRATE

REACTIONS (12)
  - Cardiac arrest [Recovered/Resolved]
  - Urinary tract infection [Unknown]
  - Dyspnoea [Recovered/Resolved]
  - Sialoadenitis [Unknown]
  - Condition aggravated [Unknown]
  - Cough [Unknown]
  - Pulmonary hypertension [Unknown]
  - Cardiac failure congestive [Recovered/Resolved]
  - Chest pain [Unknown]
  - Acute respiratory failure [Recovered/Resolved]
  - Alanine aminotransferase increased [Unknown]
  - Hypokalaemia [Unknown]

NARRATIVE: CASE EVENT DATE: 2017
